FAERS Safety Report 17203114 (Version 2)
Quarter: 2021Q3

REPORT INFORMATION
  Report Type: Spontaneous
  Country: US (occurrence: US)
  Receive Date: 20191226
  Receipt Date: 20210916
  Transmission Date: 20211014
  Serious: Yes (Hospitalization, Disabling, Other)
  Sender: FDA-Public Use
  Company Number: US-TEVA-2019-US-1158066

PATIENT
  Age: 49 Year
  Sex: Female
  Weight: 108 kg

DRUGS (37)
  1. PROTONIX [Concomitant]
     Active Substance: PANTOPRAZOLE SODIUM
     Route: 065
  2. METOPROLOL TARTRATE. [Concomitant]
     Active Substance: METOPROLOL TARTRATE
     Dosage: DOSE: 50 MG
     Route: 048
  3. PROCHLORPERAZINE. [Concomitant]
     Active Substance: PROCHLORPERAZINE
     Dosage: DOSE: 10 MG, Q4 TO 6 HOURS FOR 30 DAYS, PRN
     Route: 048
     Dates: start: 20130108
  4. ALBUTEROL SULFATE. [Concomitant]
     Active Substance: ALBUTEROL SULFATE
     Route: 065
  5. DOCETAXEL. [Suspect]
     Active Substance: DOCETAXEL
     Indication: BREAST CANCER FEMALE
     Dosage: 132 MG (AT 60 MG/M2) DAILY OVER 1 HOURS FOR 1 DAY IN NS 250 ML (3), 6 CYCLES EVERY 3 WEEKS
     Route: 042
     Dates: start: 20130110, end: 20130509
  6. PARAPLATIN [Suspect]
     Active Substance: CARBOPLATIN
     Indication: BREAST CANCER FEMALE
     Dosage: DOSE: 720 MG (AT 3.3487 AUC) INTRAVENOUS DAILY OVER 30 MINUTES FOR 1 DAY IN D5W 150 ML (4)
     Route: 042
     Dates: start: 20130110, end: 20130509
  7. HERCEPTIN [Suspect]
     Active Substance: TRASTUZUMAB
     Indication: BREAST CANCER FEMALE
     Dosage: DOSE: 777 MG (AT 6 MG/KG) INTRAVENOUS DAILY OVER 1 HOURS FOR 1 DAY IN NS 250 ML (5)
     Route: 065
     Dates: start: 20130111, end: 20130509
  8. CALCIUM [Concomitant]
     Active Substance: CALCIUM
     Route: 065
  9. MULTIVITAMINS [Concomitant]
     Active Substance: VITAMINS
     Route: 065
  10. PANTOPRAZOLE SODIUM. [Concomitant]
     Active Substance: PANTOPRAZOLE SODIUM
     Route: 065
  11. FERROUS SULFATE. [Concomitant]
     Active Substance: FERROUS SULFATE
     Dosage: DOSE: 325 (65 FE) MG
     Route: 048
  12. ALOXI [Concomitant]
     Active Substance: PALONOSETRON HYDROCHLORIDE
     Dosage: DOSE: 250 MCG DAILY OVER 30 MINUTES FOR 1 DAY IN NS 50 ML (1)
     Route: 042
     Dates: start: 20130110
  13. FLUOXETINE HCL [Concomitant]
     Active Substance: FLUOXETINE HYDROCHLORIDE
     Dosage: DOSE: 20 MG
     Route: 048
  14. CLARITIN [Concomitant]
     Active Substance: LORATADINE
     Dosage: DOSE: 10 MG
     Route: 048
  15. BENADRYL [Concomitant]
     Active Substance: DIPHENHYDRAMINE HYDROCHLORIDE
     Dosage: DOSE: 25 MG DAILY OVER 30 MINUTES FOR 1 DAY IN NS 50 ML (3)
     Route: 042
     Dates: start: 20130110
  16. NEULASTA [Concomitant]
     Active Substance: PEGFILGRASTIM
     Dosage: DOSE: 6 MG FOR 1 DAY
     Route: 058
     Dates: start: 20130111
  17. SPIRIVA HANDHALER [Concomitant]
     Route: 065
  18. VITAMIN B12 [Concomitant]
     Active Substance: CYANOCOBALAMIN
     Route: 065
  19. SIMVASTATIN. [Concomitant]
     Active Substance: SIMVASTATIN
     Dosage: DOSE: 20 MG
     Route: 048
  20. IMDUR [Concomitant]
     Active Substance: ISOSORBIDE MONONITRATE
     Dosage: DOSE: 30 MG XR24H
     Route: 048
  21. ASACOL EC [Concomitant]
     Route: 065
  22. FUROSEMIDE. [Concomitant]
     Active Substance: FUROSEMIDE
     Route: 065
  23. METRONIDAZOLE. [Concomitant]
     Active Substance: METRONIDAZOLE
     Dosage: DOSE: 500 MG, 1 TABLET THREE TIMES A DAY
     Route: 048
  24. NEURONTIN [Concomitant]
     Active Substance: GABAPENTIN
     Dosage: DOSE: 300 MG
     Route: 048
  25. RANITIDINE HCL [Concomitant]
     Active Substance: RANITIDINE HYDROCHLORIDE
     Dosage: DOSE: 50 MG, DAILY OVER 30 MINUTES FOR 1 DAY IN NS 50 ML (4)
     Route: 042
     Dates: start: 20130110
  26. DOCETAXEL SAGENT [Suspect]
     Active Substance: DOCETAXEL
     Indication: BREAST CANCER FEMALE
     Dosage: 132 MG (AT 60 MG/M2) DAILY OVER 1 HOURS FOR 1 DAY IN NS 250 ML (3), 6 CYCLES EVERY 3 WEEKS
     Route: 015
     Dates: start: 20130110, end: 20130509
  27. ZANTAC [Concomitant]
     Active Substance: RANITIDINE HYDROCHLORIDE
     Dosage: DOSE: 150 MG
     Route: 048
  28. LASIX [Concomitant]
     Active Substance: FUROSEMIDE
     Route: 065
  29. NABUMETONE. [Concomitant]
     Active Substance: NABUMETONE
     Route: 065
  30. FISH OIL [Concomitant]
     Active Substance: FISH OIL
     Route: 065
  31. DEPAKOTE [Concomitant]
     Active Substance: DIVALPROEX SODIUM
     Dosage: DOSE: 500 MG XR 24 HOUR
     Route: 048
  32. DEXAMETHASONE SODIUM PHOSPHATE. [Concomitant]
     Active Substance: DEXAMETHASONE SODIUM PHOSPHATE
     Dosage: DOSE: 10 MG, DAILY OVER 30 MINUTES FOR 1 DAY IN NS 50 ML (2)
     Route: 042
     Dates: start: 20130110
  33. CYMBALTA [Concomitant]
     Active Substance: DULOXETINE HYDROCHLORIDE
     Route: 065
  34. ONDANSETRON HCL [Concomitant]
     Active Substance: ONDANSETRON HYDROCHLORIDE
     Dosage: DOSE: 8 MG
     Route: 048
     Dates: start: 20130108
  35. METFORMIN HCL [Concomitant]
     Active Substance: METFORMIN HYDROCHLORIDE
     Route: 065
     Dates: start: 20130222
  36. PROVENTIL HFA [Concomitant]
     Active Substance: ALBUTEROL SULFATE
     Route: 065
  37. SYMBICORT [Concomitant]
     Active Substance: BUDESONIDE\FORMOTEROL FUMARATE DIHYDRATE
     Route: 065

REACTIONS (8)
  - Mucosal inflammation [Unknown]
  - Alopecia areata [Not Recovered/Not Resolved]
  - Pneumonia [Recovering/Resolving]
  - Hair texture abnormal [Not Recovered/Not Resolved]
  - Hair colour changes [Not Recovered/Not Resolved]
  - Device related infection [Unknown]
  - Fatigue [Unknown]
  - Taste disorder [Unknown]

NARRATIVE: CASE EVENT DATE: 2013
